FAERS Safety Report 9071535 (Version 1)
Quarter: 2013Q1

REPORT INFORMATION
  Report Type: Spontaneous
  Country: US (occurrence: US)
  Receive Date: 20130129
  Receipt Date: 20130129
  Transmission Date: 20140127
  Serious: No
  Sender: FDA-Public Use
  Company Number: US-ABBOTT-12P-163-0926157-00

PATIENT
  Sex: Female

DRUGS (1)
  1. HUMIRA 40 MG/ 0.8 ML PRE-FILLED SYRINGE [Suspect]
     Indication: PRODUCT USED FOR UNKNOWN INDICATION
     Dates: end: 2012

REACTIONS (6)
  - Pyrexia [Unknown]
  - Malaise [Unknown]
  - Stomatitis [Unknown]
  - Erythema multiforme [Recovered/Resolved]
  - Erythema multiforme [Recovered/Resolved]
  - Erythema multiforme [Unknown]
